FAERS Safety Report 10551190 (Version 2)
Quarter: 2014Q4

REPORT INFORMATION
  Report Type: Spontaneous
  Country: US (occurrence: US)
  Receive Date: 20141029
  Receipt Date: 20141106
  Transmission Date: 20150529
  Serious: Yes (Hospitalization, Disabling, Other)
  Sender: FDA-Public Use
  Company Number: US-TEVA-517315USA

PATIENT
  Age: 23 Year
  Sex: Male
  Weight: 90.8 kg

DRUGS (5)
  1. STRATTERA [Concomitant]
     Active Substance: ATOMOXETINE HYDROCHLORIDE
  2. ABILIFY [Concomitant]
     Active Substance: ARIPIPRAZOLE
  3. NUVIGIL [Suspect]
     Active Substance: ARMODAFINIL
     Indication: ATTENTION DEFICIT/HYPERACTIVITY DISORDER
     Dates: start: 20130105, end: 20130208
  4. NUVIGIL [Suspect]
     Active Substance: ARMODAFINIL
     Indication: DRUG WITHDRAWAL SYNDROME
  5. PROZAC [Concomitant]
     Active Substance: FLUOXETINE HYDROCHLORIDE

REACTIONS (82)
  - Stevens-Johnson syndrome [Recovered/Resolved]
  - Haemoptysis [Recovered/Resolved]
  - Scab [Recovered/Resolved]
  - Pulmonary oedema [Recovered/Resolved]
  - Malnutrition [Recovered/Resolved]
  - Restlessness [Recovered/Resolved]
  - Nasal obstruction [Unknown]
  - Symblepharon [Recovered/Resolved]
  - Mouth haemorrhage [Recovered/Resolved]
  - Oropharyngeal pain [Recovered/Resolved]
  - Tonsillar inflammation [Recovered/Resolved]
  - Asthenia [Recovered/Resolved]
  - Blister [Recovered/Resolved]
  - Vision blurred [Recovered/Resolved]
  - Periorbital haemorrhage [Recovered/Resolved]
  - Burning sensation [Recovered/Resolved]
  - Night sweats [Unknown]
  - Fatigue [Recovered/Resolved]
  - Stevens-Johnson syndrome [Recovered/Resolved]
  - Toxic epidermal necrolysis [Recovered/Resolved]
  - Eye haemorrhage [Recovered/Resolved]
  - Dysphagia [Recovered/Resolved]
  - Rhinorrhoea [Recovered/Resolved]
  - Dysphonia [Recovered/Resolved]
  - Dysuria [Recovered/Resolved]
  - Pharyngeal lesion [Recovered/Resolved]
  - Abdominal discomfort [Recovered/Resolved]
  - Dysphagia [Recovered/Resolved]
  - Conjunctivitis [Recovered/Resolved]
  - Dry eye [Recovered/Resolved]
  - Trichiasis [Recovered/Resolved]
  - Mucosal inflammation [Recovered/Resolved]
  - Mucosal inflammation [Recovered/Resolved]
  - Neuralgia [Recovered/Resolved]
  - Wheezing [Recovered/Resolved]
  - Agitation [Recovered/Resolved]
  - Sleep disorder [Recovered/Resolved]
  - Delirium [Recovered/Resolved]
  - Stevens-Johnson syndrome [Recovered/Resolved]
  - Nasal oedema [Unknown]
  - Salivary hypersecretion [Recovered/Resolved]
  - Pharyngitis [Recovered/Resolved]
  - Malaise [Recovered/Resolved]
  - Oral disorder [Recovered/Resolved]
  - Hypophagia [Recovered/Resolved]
  - Eye irritation [Recovered/Resolved]
  - Oxygen saturation decreased [Recovered/Resolved]
  - Pain in extremity [Recovered/Resolved]
  - Throat irritation [Recovered/Resolved]
  - Off label use [Unknown]
  - Epistaxis [Recovered/Resolved]
  - Pain [Recovered/Resolved]
  - Nasal congestion [Unknown]
  - Ocular hyperaemia [Recovered/Resolved]
  - Tachycardia [Recovered/Resolved]
  - Urticaria [Recovered/Resolved]
  - Oropharyngeal swelling [Recovered/Resolved]
  - Adverse event [Recovered/Resolved]
  - Eyelid oedema [Recovered/Resolved]
  - Activities of daily living impaired [Recovered/Resolved]
  - Confusional state [Recovered/Resolved]
  - Eye injury [Recovered/Resolved]
  - Gingival bleeding [Recovered/Resolved]
  - Dyspnoea [Recovered/Resolved]
  - Rash [Recovered/Resolved]
  - Rash erythematous [Recovered/Resolved]
  - Drug ineffective [Recovered/Resolved]
  - Respiratory distress [Recovered/Resolved]
  - Pruritus [Recovered/Resolved]
  - Pain [Recovered/Resolved]
  - Skin lesion [Recovered/Resolved]
  - Stevens-Johnson syndrome [Recovered/Resolved]
  - Nasal turbinate hypertrophy [Unknown]
  - Chills [Recovered/Resolved]
  - Pharyngeal erythema [Recovered/Resolved]
  - Pharyngeal exudate [Recovered/Resolved]
  - Chest pain [Recovered/Resolved]
  - Eye swelling [Recovered/Resolved]
  - Erythema [Recovered/Resolved]
  - Stridor [Recovered/Resolved]
  - Pyrexia [Recovered/Resolved]
  - Paraesthesia [Recovered/Resolved]

NARRATIVE: CASE EVENT DATE: 201302
